FAERS Safety Report 7444199-1 (Version None)
Quarter: 2011Q2

REPORT INFORMATION
  Report Type: 
  Country: None (occurrence: None)
  Receive Date: 20110429
  Receipt Date: 20100412
  Transmission Date: 20111010
  Serious: No
  Sender: FDA-Public Use
  Company Number: US-BAYER-201020446NA

PATIENT
  Sex: Female
  Weight: 54.422 kg

DRUGS (1)
  1. YAZ [Suspect]

REACTIONS (2)
  - AMENORRHOEA [None]
  - WEIGHT DECREASED [None]
